FAERS Safety Report 24345512 (Version 2)
Quarter: 2024Q3

REPORT INFORMATION
  Report Type: Spontaneous
  Country: US (occurrence: US)
  Receive Date: 20240920
  Receipt Date: 20240924
  Transmission Date: 20241016
  Serious: Yes (Hospitalization)
  Sender: CHIESI
  Company Number: US-CHIESI USA, INC.-2024CHF06059

PATIENT
  Age: 0 Year
  Sex: Male

DRUGS (1)
  1. REVCOVI [Suspect]
     Active Substance: ELAPEGADEMASE-LVLR
     Indication: Combined immunodeficiency
     Dosage: 0.7 MILLIGRAM, TWO TIMES PER WEEK
     Route: 065
     Dates: start: 20240802

REACTIONS (2)
  - Pyrexia [Unknown]
  - Teething [Unknown]

NARRATIVE: CASE EVENT DATE: 20240911
